FAERS Safety Report 4821454-2 (Version None)
Quarter: 2005Q4

REPORT INFORMATION
  Report Type: 
  Country: None (occurrence: None)
  Receive Date: 20051103
  Receipt Date: 20050816
  Transmission Date: 20060501
  Serious: Yes (Death, Hospitalization, Other)
  Sender: FDA-Public Use
  Company Number: 200210324US

PATIENT
  Age: 53 Year
  Sex: Female

DRUGS (6)
  1. CISPLATIN [Suspect]
     Indication: NEOPLASM MALIGNANT
     Dosage: 100 MG M 2 CYC IV
     Route: 042
     Dates: start: 20011226, end: 20011226
  2. FLUOROURACIL [Suspect]
     Indication: NEOPLASM MALIGNANT
     Dosage: 1000 MG/M 2 CYC IV
     Route: 042
     Dates: start: 20011226, end: 20011226
  3. MAXZIDE [Concomitant]
  4. NITRO-BID [Concomitant]
  5. HYDROCODONE WITH APAP [Concomitant]
  6. COMPAZINE [Concomitant]

REACTIONS (13)
  - BLOOD CREATININE INCREASED [None]
  - BLOOD CULTURE POSITIVE [None]
  - BLOOD UREA INCREASED [None]
  - CACHEXIA [None]
  - DEHYDRATION [None]
  - DISEASE PROGRESSION [None]
  - DYSPHAGIA [None]
  - ELECTROCARDIOGRAM ST-T SEGMENT ABNORMAL [None]
  - HYPOKALAEMIA [None]
  - KLEBSIELLA INFECTION [None]
  - LEUKOPENIA [None]
  - NEUTROPENIA [None]
  - SINUS TACHYCARDIA [None]
